FAERS Safety Report 8369661-9 (Version None)
Quarter: 2012Q2

REPORT INFORMATION
  Report Type: 
  Country: None (occurrence: None)
  Receive Date: 20120518
  Receipt Date: 20120510
  Transmission Date: 20120825
  Serious: Yes (Other)
  Sender: FDA-Public Use
  Company Number: JP-ASTELLAS-2012JP003281

PATIENT
  Sex: Female

DRUGS (5)
  1. PROGRAF [Suspect]
     Dosage: 1 MG, UNKNOWN/D
     Route: 048
     Dates: start: 20111205, end: 20120129
  2. PROGRAF [Suspect]
     Indication: RHEUMATOID ARTHRITIS
     Dosage: 1.5 MG, UNKNOWN/D
     Route: 048
     Dates: start: 20120130, end: 20120319
  3. PROGRAF [Suspect]
     Dosage: 0.5 MG, UNKNOWN/D
     Route: 048
     Dates: start: 20111107, end: 20111204
  4. CELEBREX [Concomitant]
     Indication: RHEUMATOID ARTHRITIS
     Dosage: 200 MG, BID
     Route: 048
     Dates: start: 20110620
  5. PREDNISOLONE [Concomitant]
     Indication: RHEUMATOID ARTHRITIS
     Dosage: 5 MG, UID/QD
     Route: 048
     Dates: start: 20110516

REACTIONS (2)
  - DYSPNOEA [None]
  - CELL MARKER INCREASED [None]
